FAERS Safety Report 11402618 (Version 1)
Quarter: 2015Q3

REPORT INFORMATION
  Report Type: Spontaneous
  Country: US (occurrence: US)
  Receive Date: 20150821
  Receipt Date: 20150821
  Transmission Date: 20151125
  Serious: No
  Sender: FDA-Public Use
  Company Number: US-ROCHE-1296832

PATIENT
  Sex: Male

DRUGS (14)
  1. GABAPENTIN. [Concomitant]
     Active Substance: GABAPENTIN
  2. HYDROXYZINE [Concomitant]
     Active Substance: HYDROXYZINE\HYDROXYZINE HYDROCHLORIDE
  3. DILTIAZEM [Concomitant]
     Active Substance: DILTIAZEM
  4. FLUTICASONE [Concomitant]
     Active Substance: FLUTICASONE\FLUTICASONE PROPIONATE
  5. RIBASPHERE [Concomitant]
     Active Substance: RIBAVIRIN
     Indication: HEPATITIS C
     Dosage: IN AM
     Route: 048
  6. METFORMIN [Concomitant]
     Active Substance: METFORMIN HYDROCHLORIDE
  7. GLYBURIDE. [Concomitant]
     Active Substance: GLYBURIDE
  8. TAMSULOSIN [Concomitant]
     Active Substance: TAMSULOSIN
  9. PEGASYS [Suspect]
     Active Substance: PEGINTERFERON ALFA-2A
     Indication: HEPATITIS C
     Route: 058
  10. RIBASPHERE [Concomitant]
     Active Substance: RIBAVIRIN
     Dosage: IN PM
     Route: 048
  11. NITROGLYCERIN. [Concomitant]
     Active Substance: NITROGLYCERIN
  12. NAPROSYN [Suspect]
     Active Substance: NAPROXEN
     Indication: PRODUCT USED FOR UNKNOWN INDICATION
     Route: 065
  13. VENTOLIN [Concomitant]
     Active Substance: ALBUTEROL SULFATE
  14. OMEPRAZOLE. [Concomitant]
     Active Substance: OMEPRAZOLE

REACTIONS (2)
  - Headache [Unknown]
  - Pain [Unknown]
